FAERS Safety Report 8816106 (Version 1)
Quarter: 2012Q4

REPORT INFORMATION
  Report Type: 
  Country: US (occurrence: US)
  Receive Date: 20120928
  Receipt Date: 20120928
  Transmission Date: 20130627
  Serious: Yes (Other)
  Sender: FDA-Public Use
  Company Number: US-JNJFOC-20120908446

PATIENT
  Age: 24 Month
  Sex: Female

DRUGS (1)
  1. DESITIN RAPID RELIEF CREAMY FRAGRANCE FREE [Suspect]
     Indication: PRODUCT USED FOR UNKNOWN INDICATION
     Route: 048

REACTIONS (4)
  - Dysphonia [Unknown]
  - Accidental exposure to product [Unknown]
  - Tongue discolouration [Unknown]
  - Expired drug administered [Unknown]
